FAERS Safety Report 24872100 (Version 5)
Quarter: 2025Q3

REPORT INFORMATION
  Report Type: Report from Study
  Country: EU (occurrence: EU)
  Receive Date: 20250122
  Receipt Date: 20250814
  Transmission Date: 20251020
  Serious: No
  Sender: SANDOZ
  Company Number: EU-SANDOZ-SDZ2025IT003478

PATIENT
  Age: 6 Year
  Sex: Male
  Weight: 28 kg

DRUGS (2)
  1. OMNITROPE [Suspect]
     Active Substance: SOMATROPIN
     Dosage: 0.7 MG, QW
     Route: 058
  2. OMNITROPE [Suspect]
     Active Substance: SOMATROPIN
     Indication: Growth hormone deficiency
     Dosage: 0.7 MG, QD, START DATE: 07-JUL-2025
     Route: 058

REACTIONS (2)
  - Drug dose omission by device [Unknown]
  - Therapy interrupted [Unknown]

NARRATIVE: CASE EVENT DATE: 20250114
